FAERS Safety Report 8045733-3 (Version None)
Quarter: 2012Q1

REPORT INFORMATION
  Report Type: 
  Country: None (occurrence: None)
  Receive Date: 20120113
  Receipt Date: 20120109
  Transmission Date: 20120608
  Serious: Yes (Hospitalization, Other)
  Sender: FDA-Public Use
  Company Number: PHHO2010DE16407

PATIENT
  Sex: Female
  Weight: 70 kg

DRUGS (2)
  1. DROSPIRENONE AND ETHINYL ESTRADIOL [Concomitant]
     Indication: CONTRACEPTION
     Dosage: UNK
     Dates: start: 20100701
  2. GILENYA [Suspect]
     Indication: MULTIPLE SCLEROSIS
     Dosage: 0.5MG
     Route: 048
     Dates: start: 20101028, end: 20101028

REACTIONS (12)
  - GASTROINTESTINAL PAIN [None]
  - TREMOR [None]
  - INFLUENZA LIKE ILLNESS [None]
  - FLATULENCE [None]
  - PRESYNCOPE [None]
  - CHILLS [None]
  - PAIN IN EXTREMITY [None]
  - PYREXIA [None]
  - OROPHARYNGEAL PAIN [None]
  - NAUSEA [None]
  - PHARYNGITIS [None]
  - WHITE BLOOD CELL COUNT INCREASED [None]
